FAERS Safety Report 9521738 (Version 1)
Quarter: 2013Q1

REPORT INFORMATION
  Report Type: Spontaneous
  Country: US (occurrence: None)
  Receive Date: 20130305
  Receipt Date: 20130305
  Transmission Date: 20140127
  Serious: Yes (Hospitalization)
  Sender: FDA-Public Use
  Company Number: 163-21880-12033096

PATIENT
  Age: 52 Year
  Sex: Male
  Weight: 90.72 kg

DRUGS (12)
  1. REVLIMID (LENALIDOMIDE) (25 MILLIGRAM, CAPSULES) [Suspect]
     Indication: PLASMA CELL MYELOMA
     Dosage: 1-21 7 DAYS OFF
     Route: 048
     Dates: start: 20111007, end: 20120228
  2. VELCADE [Concomitant]
  3. ASPIRIN (ACETYLSALICYLIC ACID) (UNKNOWN) (ACETYLSALICYLIC ACID) [Concomitant]
  4. ALLEGRA (FEXOFENADINE HYDROCHLORIDE) (UNKNOWN) [Concomitant]
  5. VYTORIN (INEGY) (UNKNOWN) [Concomitant]
  6. MOBIC (MELOXICAM) (UNKNOWN) [Concomitant]
  7. AMITRIPTYLINE (AMITRIPTYLINE) (UNKNOWN) [Concomitant]
  8. LYRICA (PREGABALIN) (UNKNOWN) [Concomitant]
  9. PRILOSEC (OMEPRAZOLE) (UNKNOWN) [Concomitant]
  10. PERCOCET (OXYCET) (UNKNOWN) [Concomitant]
  11. ALBUTEROL (SALBUTAMOL) (UNKNOWN) [Concomitant]
  12. DEXAMETHASONE (DEXAMETHASONE) (UNKNOWN) [Concomitant]

REACTIONS (1)
  - Pneumonia [None]
